FAERS Safety Report 14436831 (Version 1)
Quarter: 2018Q1

REPORT INFORMATION
  Report Type: Spontaneous
  Country: US (occurrence: US)
  Receive Date: 20180125
  Receipt Date: 20180125
  Transmission Date: 20180509
  Serious: Yes (Hospitalization)
  Sender: FDA-Public Use
  Company Number: US-UNITED THERAPEUTICS-UNT-2017-011838

PATIENT
  Sex: Female

DRUGS (2)
  1. REMODULIN [Suspect]
     Active Substance: TREPROSTINIL
     Dosage: 0.030 ?G/KG, CONTINUING
     Route: 041
  2. REMODULIN [Suspect]
     Active Substance: TREPROSTINIL
     Indication: PULMONARY ARTERIAL HYPERTENSION
     Dosage: 0.035 ?G/KG, CONTINUING (PUMP RATE 32 ML PER 24)
     Route: 041
     Dates: start: 20151112

REACTIONS (14)
  - Dyspnoea [Unknown]
  - Headache [Unknown]
  - Fluid retention [Unknown]
  - Pyrexia [Unknown]
  - Palpitations [Not Recovered/Not Resolved]
  - Nausea [Unknown]
  - Oxygen saturation abnormal [Unknown]
  - Blood pressure decreased [Unknown]
  - Chest pain [Unknown]
  - Vomiting [Unknown]
  - Injection site discharge [Unknown]
  - Cough [Unknown]
  - Fatigue [Unknown]
  - Injection site irritation [Unknown]

NARRATIVE: CASE EVENT DATE: 20170906
